FAERS Safety Report 9916500 (Version 1)
Quarter: 2014Q1

REPORT INFORMATION
  Report Type: Spontaneous
  Country: CZ (occurrence: None)
  Receive Date: 20140219
  Receipt Date: 20140219
  Transmission Date: 20141002
  Serious: Yes (Life-Threatening, Other)
  Sender: FDA-Public Use
  Company Number: 2182627

PATIENT
  Age: 80 Year
  Sex: Female

DRUGS (2)
  1. CARBOPLATIN [Suspect]
     Indication: OVARIAN CANCER
     Dosage: 240 MG MILLIGRAM(S), TOTAL, INTRAVENOUS DRIP
     Route: 041
     Dates: start: 20131216
  2. KYTRIL [Concomitant]

REACTIONS (6)
  - Swollen tongue [None]
  - Lip swelling [None]
  - Musculoskeletal stiffness [None]
  - Erythema [None]
  - Dyspnoea [None]
  - Feeling abnormal [None]
